FAERS Safety Report 11547092 (Version 2)
Quarter: 2016Q2

REPORT INFORMATION
  Report Type: Spontaneous
  Country: US (occurrence: US)
  Receive Date: 20150924
  Receipt Date: 20160401
  Transmission Date: 20160815
  Serious: Yes (Life-Threatening, Other)
  Sender: FDA-Public Use
  Company Number: ADR-2015-01003

PATIENT
  Age: 49 Year
  Sex: Female

DRUGS (3)
  1. BACLOFEN INTRATHECAL [Suspect]
     Active Substance: BACLOFEN
     Indication: PAIN
     Dosage: 99.93 MCG/DAY
     Route: 037
  2. BUPIVACAINE. [Suspect]
     Active Substance: BUPIVACAINE
     Dosage: 3.997 MG/DAY
     Route: 037
  3. DILAUDID [Suspect]
     Active Substance: HYDROMORPHONE HYDROCHLORIDE
     Dosage: 3.997 MCG/DAY
     Route: 037

REACTIONS (4)
  - Device failure [None]
  - Device connection issue [None]
  - Unresponsive to stimuli [Unknown]
  - Overdose [Unknown]
